FAERS Safety Report 13633581 (Version 1)
Quarter: 2017Q2

REPORT INFORMATION
  Report Type: Spontaneous
  Country: US (occurrence: US)
  Receive Date: 20170531
  Receipt Date: 20170531
  Transmission Date: 20170830
  Serious: No
  Sender: FDA-Public Use
  Company Number: US-ASTELLAS-1558703

PATIENT
  Age: 68 Year
  Sex: Female

DRUGS (4)
  1. MEGACE ES [Concomitant]
     Active Substance: MEGESTROL ACETATE
  2. COMPAZINE [Concomitant]
     Active Substance: PROCHLORPERAZINE MALEATE
  3. ZOFRAN [Concomitant]
     Active Substance: ONDANSETRON HYDROCHLORIDE
  4. TARCEVA [Suspect]
     Active Substance: ERLOTINIB HYDROCHLORIDE
     Indication: NEOPLASM MALIGNANT
     Route: 048
     Dates: start: 20150224

REACTIONS (4)
  - Nausea [Not Recovered/Not Resolved]
  - Hair colour changes [Not Recovered/Not Resolved]
  - Dyspepsia [Not Recovered/Not Resolved]
  - Growth of eyelashes [Not Recovered/Not Resolved]

NARRATIVE: CASE EVENT DATE: 20150224
